FAERS Safety Report 7650557-2 (Version None)
Quarter: 2011Q3

REPORT INFORMATION
  Report Type: 
  Country: None (occurrence: None)
  Receive Date: 20110802
  Receipt Date: 20110725
  Transmission Date: 20111222
  Serious: Yes (Hospitalization, Other)
  Sender: FDA-Public Use
  Company Number: US-ALEXION-A201100078

PATIENT
  Sex: Female
  Weight: 97.5 kg

DRUGS (18)
  1. NITROSTAT [Concomitant]
     Indication: CHEST PAIN
     Dosage: 0.4 MG, Q5MIN X3 AS NEEDED
     Route: 060
  2. ASPIRIN [Concomitant]
     Dosage: 81 MG, QD
     Route: 048
  3. LANTUS [Concomitant]
     Dosage: 50 IU, UNK
     Route: 058
  4. FOLIC ACID [Concomitant]
     Dosage: 1 MG, QD
     Route: 048
  5. NORVASC [Concomitant]
     Dosage: 5 MG, QD
     Route: 048
  6. GLUCOPHAGE [Concomitant]
     Dosage: 500 MG, BID
     Route: 048
  7. NOVOLOG [Concomitant]
     Dosage: 12 IU, TID
     Route: 058
  8. SOLIRIS [Suspect]
     Indication: PAROXYSMAL NOCTURNAL HAEMOGLOBINURIA
     Dosage: UNK, Q2W
     Route: 042
  9. COUMADIN [Suspect]
     Dosage: 5 MG, QD
     Route: 048
  10. VICODIN [Concomitant]
     Dosage: UNK
  11. LIDODERM [Concomitant]
     Dosage: UNK, QD
     Route: 062
  12. AMIODARONE HCL [Concomitant]
     Dosage: 200 MG, QD
     Route: 048
  13. LEXAPRO [Concomitant]
     Dosage: 10 MG, QD
     Route: 048
  14. LISINOPRIL [Concomitant]
     Dosage: 20 MG, QD
     Route: 048
  15. IMDUR [Concomitant]
     Dosage: 30 MG, QD
     Route: 048
  16. LOPRESSOR [Concomitant]
     Dosage: 12.5 MG, BID
     Route: 048
  17. OCEAN NASAL [Concomitant]
     Dosage: UNK, QHR PRN
     Route: 045
  18. PRILOSEC [Concomitant]
     Dosage: 20 MG, QD
     Route: 048

REACTIONS (9)
  - CARDIAC FAILURE CONGESTIVE [None]
  - THROMBOCYTOPENIA [None]
  - HYPOMAGNESAEMIA [None]
  - HEART RATE IRREGULAR [None]
  - INTERNATIONAL NORMALISED RATIO DECREASED [None]
  - CONDITION AGGRAVATED [None]
  - ATRIAL FIBRILLATION [None]
  - CHEST PAIN [None]
  - HYPOKALAEMIA [None]
